FAERS Safety Report 9267849 (Version 1)
Quarter: 2013Q2

REPORT INFORMATION
  Report Type: Spontaneous
  Country: US (occurrence: US)
  Receive Date: 20130502
  Receipt Date: 20130502
  Transmission Date: 20140414
  Serious: Yes (Other)
  Sender: FDA-Public Use
  Company Number: US-ALEXION-A201201097

PATIENT
  Age: 13 Year
  Sex: Female
  Weight: 48 kg

DRUGS (5)
  1. SOLIRIS 300MG [Suspect]
     Indication: HAEMOLYTIC URAEMIC SYNDROME
     Dosage: 900 MG, QW
     Route: 042
     Dates: start: 20100930
  2. SOLIRIS 300MG [Suspect]
     Dosage: 1200 MG, Q2W
     Route: 042
     Dates: start: 20110127
  3. IMMUNOSUPPRESSIVE MEDICATIONS [Concomitant]
  4. IMMUNOGLOBULIN [Concomitant]
     Dosage: UNK, MONTHLY
     Route: 042
  5. CIPROFLOXACIN [Concomitant]
     Indication: ANTIBIOTIC PROPHYLAXIS
     Dosage: UNK

REACTIONS (2)
  - Parvovirus infection [Not Recovered/Not Resolved]
  - Platelet count increased [Recovering/Resolving]
